FAERS Safety Report 5296162-7 (Version None)
Quarter: 2007Q1

REPORT INFORMATION
  Report Type: 
  Country: None (occurrence: None)
  Receive Date: 20070201
  Receipt Date: 20061018
  Transmission Date: 20070707
  Serious: No
  Sender: FDA-Public Use
  Company Number: 2006PV023466

PATIENT
  Age: 57 Year
  Sex: Male
  Weight: 127.0072 kg

DRUGS (6)
  1. BYETTA [Suspect]
     Dosage: SEE IMAGE
     Route: 058
     Dates: start: 20060901, end: 20060101
  2. BYETTA [Suspect]
     Dosage: SEE IMAGE
     Route: 058
     Dates: start: 20060915, end: 20061009
  3. BYETTA [Suspect]
     Dosage: SEE IMAGE
     Route: 058
     Dates: start: 20061001
  4. BYETTA [Suspect]
     Dosage: SEE IMAGE
     Route: 058
     Dates: start: 20061010
  5. BYETTA [Suspect]
  6. GLIPIZIDE [Concomitant]

REACTIONS (1)
  - BLOOD GLUCOSE INCREASED [None]
